FAERS Safety Report 5879492-7 (Version None)
Quarter: 2008Q3

REPORT INFORMATION
  Report Type: 
  Country: None (occurrence: None)
  Receive Date: 20080911
  Receipt Date: 20080911
  Transmission Date: 20090109
  Serious: Yes (Life-Threatening, Other)
  Sender: FDA-Public Use
  Company Number: None

PATIENT
  Age: 55 Year
  Sex: Male
  Weight: 84.8226 kg

DRUGS (1)
  1. VERAPAMIL [Suspect]
     Indication: HYPERTENSION
     Dosage: 240 MG DAILY PO
     Route: 048
     Dates: start: 20080502, end: 20080910

REACTIONS (8)
  - ABDOMINAL DISTENSION [None]
  - DYSPNOEA [None]
  - GASTRIC DISORDER [None]
  - HEADACHE [None]
  - MALIGNANT MELANOMA [None]
  - MUSCLE SPASMS [None]
  - TINNITUS [None]
  - VISUAL IMPAIRMENT [None]
